FAERS Safety Report 7254346-2 (Version None)
Quarter: 2011Q1

REPORT INFORMATION
  Report Type: 
  Country: None (occurrence: None)
  Receive Date: 20110129
  Receipt Date: 20100122
  Transmission Date: 20110831
  Serious: Yes (Hospitalization)
  Sender: FDA-Public Use
  Company Number: US-ABBOTT-10P-163-0621659-00

PATIENT
  Sex: Male
  Weight: 108.05 kg

DRUGS (6)
  1. HUMIRA [Suspect]
     Indication: REITER'S SYNDROME
  2. HUMIRA [Suspect]
     Indication: UVEITIS
     Route: 058
     Dates: start: 20100101, end: 20100110
  3. AZATHIOPRINE [Concomitant]
     Indication: REITER'S SYNDROME
  4. PREDNISONE [Suspect]
     Indication: UVEITIS
     Route: 048
     Dates: end: 20100110
  5. PREDNISONE [Suspect]
     Indication: REITER'S SYNDROME
  6. AZATHIOPRINE [Concomitant]
     Indication: UVEITIS
     Route: 048
     Dates: start: 20050101, end: 20100110

REACTIONS (1)
  - PANCREATITIS ACUTE [None]
